APPROVED DRUG PRODUCT: DOCETAXEL
Active Ingredient: DOCETAXEL
Strength: 200MG/20ML (10MG/ML)
Dosage Form/Route: INJECTABLE;INJECTION
Application: N202356 | Product #004
Applicant: PFIZER LABS
Approved: Mar 13, 2014 | RLD: No | RS: No | Type: DISCN